FAERS Safety Report 4602792-5 (Version None)
Quarter: 2005Q1

REPORT INFORMATION
  Report Type: 
  Country: None (occurrence: None)
  Receive Date: 20050307
  Receipt Date: 20050222
  Transmission Date: 20050727
  Serious: Yes (Death)
  Sender: FDA-Public Use
  Company Number: MK200502-0215-1

PATIENT
  Age: 20 Year
  Sex: Male

DRUGS (4)
  1. METHADOSE [Suspect]
  2. VICODIN [Suspect]
  3. MARIJUANA [Concomitant]
  4. ALCOHOL [Concomitant]

REACTIONS (4)
  - ALCOHOL USE [None]
  - DRUG DEPENDENCE [None]
  - MEDICATION ERROR [None]
  - MULTIPLE DRUG OVERDOSE ACCIDENTAL [None]
